FAERS Safety Report 16753930 (Version 3)
Quarter: 2019Q4

REPORT INFORMATION
  Report Type: Spontaneous
  Country: IT (occurrence: IT)
  Receive Date: 20190829
  Receipt Date: 20191018
  Transmission Date: 20200122
  Serious: Yes (Hospitalization)
  Sender: FDA-Public Use
  Company Number: IT-TEVA-2019-IT-1098201

PATIENT
  Age: 55 Year
  Sex: Female
  Weight: 60 kg

DRUGS (4)
  1. OLMESARTAN MEDOXOMIL. [Concomitant]
     Active Substance: OLMESARTAN MEDOXOMIL
  2. FULCROSUPRA [Concomitant]
     Active Substance: FENOFIBRATE
  3. ROSUVASTATIN CALCIUM. [Suspect]
     Active Substance: ROSUVASTATIN CALCIUM
     Indication: HYPERCHOLESTEROLAEMIA
     Dosage: 5 MG, FROM YEARS
     Route: 048
  4. LORAZEPAM. [Concomitant]
     Active Substance: LORAZEPAM
     Indication: DEPRESSION
     Dosage: 15 GTT

REACTIONS (5)
  - Pneumonitis [Recovering/Resolving]
  - Blood creatinine increased [Recovering/Resolving]
  - Pyrexia [Recovering/Resolving]
  - Confusional state [Recovering/Resolving]
  - Blood creatine phosphokinase increased [Recovering/Resolving]

NARRATIVE: CASE EVENT DATE: 20190731
